FAERS Safety Report 8538244-X (Version None)
Quarter: 2012Q3

REPORT INFORMATION
  Report Type: 
  Country: None (occurrence: None)
  Receive Date: 20120726
  Receipt Date: 20120720
  Transmission Date: 20120928
  Serious: No
  Sender: FDA-Public Use
  Company Number: US-BIOGENIDEC-2012BI015304

PATIENT
  Age: 57 Year
  Sex: Female

DRUGS (1)
  1. TYSABRI [Suspect]
     Indication: MULTIPLE SCLEROSIS
     Route: 042
     Dates: start: 20120427, end: 20120622

REACTIONS (5)
  - HYPERSENSITIVITY [None]
  - OESOPHAGEAL DISCOMFORT [None]
  - PRURITUS [None]
  - COUGH [None]
  - CHEST PAIN [None]
